FAERS Safety Report 7688965-6 (Version None)
Quarter: 2011Q3

REPORT INFORMATION
  Report Type: 
  Country: None (occurrence: None)
  Receive Date: 20110817
  Receipt Date: 20110811
  Transmission Date: 20111222
  Serious: Yes (Other)
  Sender: FDA-Public Use
  Company Number: PHHY2011ZA72717

PATIENT
  Age: 66 Year
  Sex: Female

DRUGS (5)
  1. ESTRADERM [Concomitant]
     Dosage: 50
     Route: 062
  2. ESTRADERM [Suspect]
     Dosage: UNK UKN, UNK
     Route: 062
  3. MOVIPREP [Concomitant]
     Indication: CONSTIPATION
     Dosage: 1SACHET DAILY
  4. PANAMOR PRN [Concomitant]
     Indication: BACK PAIN
     Dosage: UNK UKN, UNK
  5. MULTI-VITAMIN [Concomitant]
     Dosage: UNK UKN, UNK

REACTIONS (6)
  - LOSS OF CONSCIOUSNESS [None]
  - DIZZINESS [None]
  - VERTIGO [None]
  - BALANCE DISORDER [None]
  - CEREBROVASCULAR ACCIDENT [None]
  - MALAISE [None]
